APPROVED DRUG PRODUCT: ACETYLCYSTEINE
Active Ingredient: ACETYLCYSTEINE
Strength: 6GM/30ML (200MG/ML)
Dosage Form/Route: INJECTABLE;INTRAVENOUS
Application: A208166 | Product #001 | TE Code: AP
Applicant: ZYDUS PHARMACEUTICALS USA INC
Approved: Jul 20, 2018 | RLD: No | RS: No | Type: RX